FAERS Safety Report 13882902 (Version 1)
Quarter: 2017Q3

REPORT INFORMATION
  Report Type: Spontaneous
  Country: US (occurrence: US)
  Receive Date: 20170818
  Receipt Date: 20170818
  Transmission Date: 20171127
  Serious: No
  Sender: FDA-Public Use
  Company Number: US-PFIZER INC-2017354981

PATIENT
  Age: 64 Year
  Sex: Female

DRUGS (3)
  1. MERTHIOLATE [Suspect]
     Active Substance: BENZALKONIUM CHLORIDE
     Dosage: UNK
  2. ENFLURANE. [Suspect]
     Active Substance: ENFLURANE
     Dosage: UNK
  3. DEMEROL [Suspect]
     Active Substance: MEPERIDINE HYDROCHLORIDE
     Dosage: UNK

REACTIONS (1)
  - Drug hypersensitivity [Unknown]
